FAERS Safety Report 8369804-7 (Version None)
Quarter: 2012Q2

REPORT INFORMATION
  Report Type: 
  Country: None (occurrence: None)
  Receive Date: 20120518
  Receipt Date: 20120503
  Transmission Date: 20120825
  Serious: Yes (Other)
  Sender: FDA-Public Use
  Company Number: US-SANOFI-AVENTIS-2012SA034876

PATIENT
  Age: 54 Year
  Sex: Male

DRUGS (15)
  1. ALLEGRA [Suspect]
  2. TAMSULOSIN HYDROCHLORIDE [Concomitant]
  3. ALL OTHER THERAPEUTIC PRODUCTS [Concomitant]
  4. ADVAIR DISKUS 100/50 [Suspect]
     Indication: ASTHMA
     Dosage: DOSE:1 PUFF(S)
     Dates: start: 20030101
  5. HYDROCHLOROTHIAZIDE [Concomitant]
  6. FLOVENT [Suspect]
     Indication: ASTHMA
  7. BECLOMETHASONE DIPROPIONATE [Concomitant]
  8. MONTELUKAST SODIUM [Concomitant]
  9. ALL OTHER THERAPEUTIC PRODUCTS [Concomitant]
  10. NYSTATIN [Concomitant]
  11. ANTIFUNGALS [Suspect]
  12. AZELASTINE HYDROCHLORIDE [Concomitant]
  13. ALBUTEROL SULFATE AUTOHALER [Suspect]
     Indication: ASTHMA
     Route: 055
  14. ALL OTHER THERAPEUTIC PRODUCTS [Concomitant]
  15. ALBUTEROL SULFATE AUTOHALER [Concomitant]

REACTIONS (23)
  - DEMENTIA [None]
  - ABDOMINAL DISTENSION [None]
  - GASTROINTESTINAL DISORDER [None]
  - OVERDOSE [None]
  - DYSURIA [None]
  - PHARYNGEAL DISORDER [None]
  - LIBIDO DECREASED [None]
  - DEPRESSED LEVEL OF CONSCIOUSNESS [None]
  - DRY MOUTH [None]
  - ORAL CANDIDIASIS [None]
  - DRUG INEFFECTIVE [None]
  - SPERMATOZOA ABNORMAL [None]
  - MEMORY IMPAIRMENT [None]
  - CONSTIPATION [None]
  - SALIVARY HYPERSECRETION [None]
  - ILL-DEFINED DISORDER [None]
  - TREATMENT NONCOMPLIANCE [None]
  - BREATH ODOUR [None]
  - DYSPNOEA [None]
  - DENTAL CARIES [None]
  - CONDITION AGGRAVATED [None]
  - DREAMY STATE [None]
  - DENTAL PROSTHESIS USER [None]
